FAERS Safety Report 26028856 (Version 1)
Quarter: 2025Q4

REPORT INFORMATION
  Report Type: Spontaneous
  Country: US (occurrence: US)
  Receive Date: 20251112
  Receipt Date: 20251112
  Transmission Date: 20260118
  Serious: Yes (Hospitalization, Other)
  Sender: AMNEAL
  Company Number: US-AMNEAL PHARMACEUTICALS-2025-AMRX-04312

PATIENT
  Age: 4 Year
  Sex: Male

DRUGS (3)
  1. NICARDIPINE HYDROCHLORIDE [Suspect]
     Active Substance: NICARDIPINE HYDROCHLORIDE
     Indication: Hypertension
     Dosage: POST OPERATIVE DAY 11 (CONTINUOUS INTRAVENOUS NICARDIPINE)
     Route: 042
  2. TACROLIMUS [Suspect]
     Active Substance: TACROLIMUS
     Indication: Product used for unknown indication
     Dosage: UNK
     Route: 065
  3. TACROLIMUS [Suspect]
     Active Substance: TACROLIMUS
     Dosage: 1.8 MILLIGRAM, BID
     Route: 065

REACTIONS (5)
  - Respiratory failure [Recovering/Resolving]
  - Acute kidney injury [Recovered/Resolved]
  - Haematoma [Recovered/Resolved]
  - Toxicity to various agents [Recovering/Resolving]
  - Drug interaction [Unknown]
